FAERS Safety Report 5259470-1 (Version None)
Quarter: 2007Q1

REPORT INFORMATION
  Report Type: 
  Country: None (occurrence: None)
  Receive Date: 20070305
  Receipt Date: 20070221
  Transmission Date: 20070707
  Serious: Yes (Hospitalization)
  Sender: FDA-Public Use
  Company Number: 237054

PATIENT
  Age: 53 Year
  Sex: Female
  Weight: 54.6 kg

DRUGS (8)
  1. AVASTIN [Suspect]
     Indication: NON-SMALL CELL LUNG CANCER
     Dosage: 825 MG, SINGLE, INTRAVENOUS
     Route: 042
     Dates: start: 20070118
  2. PEMETREXED(PEMETREXED) [Suspect]
     Indication: NON-SMALL CELL LUNG CANCER
     Dosage: 775 MG, SINGLE, INTRAVENOUS
     Route: 042
     Dates: start: 20070118
  3. PERCOCET [Concomitant]
  4. DOCUSATE SODIUM [Concomitant]
  5. SENNA [Concomitant]
  6. PROTONIX [Concomitant]
  7. DILANTIN [Concomitant]
  8. FOLIC ACID [Concomitant]

REACTIONS (1)
  - PANCREATITIS [None]
